FAERS Safety Report 19026991 (Version 1)
Quarter: 2021Q1

REPORT INFORMATION
  Report Type: Spontaneous
  Country: CN (occurrence: CN)
  Receive Date: 20210318
  Receipt Date: 20210318
  Transmission Date: 20210420
  Serious: Yes (Hospitalization)
  Sender: FDA-Public Use
  Company Number: CN-BAXTER-2021BAX005050

PATIENT
  Age: 2 Year
  Sex: Male
  Weight: 12.4 kg

DRUGS (14)
  1. ENDOXAN [Suspect]
     Active Substance: CYCLOPHOSPHAMIDE
     Indication: NEUROBLASTOMA
     Dosage: DAY 1 TO 2; ENDOXAN 868 MG+ 0.9% NS 500 ML
     Route: 041
     Dates: start: 20210220, end: 20210221
  2. 0.9% SODIUM CHLORIDE INJECTION [Suspect]
     Active Substance: SODIUM CHLORIDE
     Indication: MEDICATION DILUTION
     Dosage: DAY 1 TO 2; ENDOXAN 868 MG+ 0.9% NS 500 ML
     Route: 041
     Dates: start: 20210220, end: 20210221
  3. 0.9% SODIUM CHLORIDE INJECTION [Suspect]
     Active Substance: SODIUM CHLORIDE
     Dosage: DOSE REINTRODUCED; ENDOXAN + 0.9% NS
     Route: 041
  4. ONDANSETRON HYDROCHLORIDE. [Suspect]
     Active Substance: ONDANSETRON HYDROCHLORIDE
     Dosage: DOSE REINTRODUCED; ONDANSETRON + 0.9% NS
     Route: 042
  5. 0.9% SODIUM CHLORIDE INJECTION [Suspect]
     Active Substance: SODIUM CHLORIDE
     Dosage: DOSE REINTRODUCED; DOXORUBICIN + VINCRISTINE SULFATE + 0.9% NS
     Route: 041
  6. 0.9% SODIUM CHLORIDE INJECTION [Suspect]
     Active Substance: SODIUM CHLORIDE
     Dosage: DAY1?3; DOXORUBICIN 14 MG + VINCRISTINE SULFATE 0.27 MG + 0.9% NS 500 ML
     Route: 041
     Dates: start: 20210220, end: 20210222
  7. 0.9% SODIUM CHLORIDE INJECTION [Suspect]
     Active Substance: SODIUM CHLORIDE
     Dosage: ONDANSETRON 2.8 MG + 0.9% NS 25 ML; 30 MINUTES BEFORE CHEMOTHERAPY
     Route: 042
     Dates: start: 20210220, end: 20210222
  8. ONDANSETRON HYDROCHLORIDE. [Suspect]
     Active Substance: ONDANSETRON HYDROCHLORIDE
     Indication: PROPHYLAXIS OF NAUSEA AND VOMITING
     Dosage: ONDANSETRON 2.8 MG + 0.9% NS 25 ML; 30 MINUTES BEFORE CHEMOTHERAPY
     Route: 042
     Dates: start: 20210220, end: 20210222
  9. 0.9% SODIUM CHLORIDE INJECTION [Suspect]
     Active Substance: SODIUM CHLORIDE
     Dosage: DOSE REINTRODUCED; ONDANSETRON + 0.9% NS
     Route: 042
  10. ENDOXAN [Suspect]
     Active Substance: CYCLOPHOSPHAMIDE
     Dosage: DOSE REINTRODUCED; ENDOXAN + 0.9% NS
     Route: 041
  11. VINCRISTINE SULFATE. [Suspect]
     Active Substance: VINCRISTINE SULFATE
     Indication: NEUROBLASTOMA
     Dosage: DAY1?3; DOXORUBICIN 14 MG + VINCRISTINE SULFATE 0.27 MG+ 0.9% NS 500 ML
     Route: 041
     Dates: start: 20210220, end: 20210222
  12. VINCRISTINE SULFATE. [Suspect]
     Active Substance: VINCRISTINE SULFATE
     Dosage: DOSE REINTRODUCED; DOXORUBICIN + VINCRISTINE SULFATE + 0.9% NS
     Route: 041
  13. DOXORUBICIN HYDROCHLORIDE. [Suspect]
     Active Substance: DOXORUBICIN HYDROCHLORIDE
     Dosage: DOSE REINTRODUCED; DOXORUBICIN + VINCRISTINE SULFATE + 0.9% NS
     Route: 041
  14. DOXORUBICIN HYDROCHLORIDE. [Suspect]
     Active Substance: DOXORUBICIN HYDROCHLORIDE
     Indication: NEUROBLASTOMA
     Dosage: DAY1?3; DOXORUBICIN 14 MG + VINCRISTINE SULFATE 0.27 MG+ 0.9% NS 500 ML
     Route: 041
     Dates: start: 20210220, end: 20210222

REACTIONS (2)
  - Pancytopenia [Recovered/Resolved]
  - Pyrexia [Recovered/Resolved]

NARRATIVE: CASE EVENT DATE: 20210227
